FAERS Safety Report 11437173 (Version 1)
Quarter: 2015Q3

REPORT INFORMATION
  Report Type: Spontaneous
  Country: US (occurrence: US)
  Receive Date: 20150821
  Receipt Date: 20150821
  Transmission Date: 20151125
  Serious: Yes (Other)
  Sender: FDA-Public Use
  Company Number: US-ELI_LILLY_AND_COMPANY-US200703002130

PATIENT
  Sex: Female

DRUGS (2)
  1. CYMBALTA [Suspect]
     Active Substance: DULOXETINE HYDROCHLORIDE
     Dosage: 60 MG, UNK
  2. PAXIL [Interacting]
     Active Substance: PAROXETINE HYDROCHLORIDE
     Dosage: 10 MG, UNK

REACTIONS (5)
  - Ataxia [Unknown]
  - Serotonin syndrome [Unknown]
  - Confusional state [Unknown]
  - Drug interaction [Unknown]
  - Abnormal behaviour [Unknown]
